FAERS Safety Report 10207517 (Version 1)
Quarter: 2014Q2

REPORT INFORMATION
  Report Type: Spontaneous
  Country: US (occurrence: None)
  Receive Date: 20140528
  Receipt Date: 20140528
  Transmission Date: 20141212
  Serious: No
  Sender: FDA-Public Use
  Company Number: None

PATIENT
  Sex: Female

DRUGS (1)
  1. TECFIDERA 240 MG BIOGEN IDEC [Suspect]
     Indication: MULTIPLE SCLEROSIS
     Route: 048
     Dates: start: 201405, end: 20140525

REACTIONS (5)
  - Hypersensitivity [None]
  - Nausea [None]
  - Vomiting [None]
  - Decreased appetite [None]
  - Weight decreased [None]
